FAERS Safety Report 21544484 (Version 1)
Quarter: 2022Q4

REPORT INFORMATION
  Report Type: Spontaneous
  Country: US (occurrence: None)
  Receive Date: 20221102
  Receipt Date: 20221102
  Transmission Date: 20230112
  Serious: No
  Sender: FDA-Public Use
  Company Number: 2022A344899

PATIENT
  Sex: Female
  Weight: 96.6 kg

DRUGS (1)
  1. SYMBICORT [Suspect]
     Active Substance: BUDESONIDE\FORMOTEROL FUMARATE DIHYDRATE
     Indication: Asthma
     Dosage: 2 PUFFS TWICE A DAY
     Route: 055

REACTIONS (4)
  - Wheezing [Unknown]
  - Cough [Unknown]
  - Drug ineffective [Unknown]
  - Device malfunction [Unknown]
